FAERS Safety Report 7385957-1 (Version None)
Quarter: 2011Q1

REPORT INFORMATION
  Report Type: 
  Country: None (occurrence: None)
  Receive Date: 20110331
  Receipt Date: 20110322
  Transmission Date: 20110831
  Serious: Yes (Other)
  Sender: FDA-Public Use
  Company Number: NL-TEVA-273589ISR

PATIENT
  Sex: Female

DRUGS (1)
  1. IBUPROFEN [Suspect]
     Indication: JUVENILE ARTHRITIS
     Route: 048
     Dates: start: 20100527, end: 20100531

REACTIONS (1)
  - TUBULOINTERSTITIAL NEPHRITIS [None]
